FAERS Safety Report 8433698-1 (Version None)
Quarter: 2012Q2

REPORT INFORMATION
  Report Type: 
  Country: None (occurrence: None)
  Receive Date: 20120613
  Receipt Date: 20120601
  Transmission Date: 20120825
  Serious: Yes (Other)
  Sender: FDA-Public Use
  Company Number: CHPA2011US10894

PATIENT
  Age: 81 Year
  Sex: Male

DRUGS (1)
  1. PHENYLEPHRINE HCL [Suspect]
     Indication: NASAL CONGESTION
     Dosage: 4 SPRAYS, Q24H
     Route: 045
     Dates: start: 20100101

REACTIONS (4)
  - BRONCHITIS [None]
  - ANXIETY [None]
  - INCORRECT DRUG ADMINISTRATION DURATION [None]
  - SINUS DISORDER [None]
